FAERS Safety Report 8728362 (Version 2)
Quarter: 2012Q4

REPORT INFORMATION
  Report Type: Report from Study
  Country: US (occurrence: US)
  Receive Date: 20120817
  Receipt Date: 20121008
  Transmission Date: 20130627
  Serious: Yes (Other)
  Sender: FDA-Public Use
  Company Number: US-JNJFOC-20120804433

PATIENT
  Age: 55 Year
  Sex: Female
  Weight: 62.14 kg

DRUGS (4)
  1. REMICADE [Suspect]
     Indication: RHEUMATOID ARTHRITIS
     Route: 042
     Dates: start: 20120904
  2. REMICADE [Suspect]
     Indication: RHEUMATOID ARTHRITIS
     Route: 042
     Dates: start: 20120731
  3. REMICADE [Suspect]
     Indication: RHEUMATOID ARTHRITIS
     Route: 042
  4. METHOTREXATE [Concomitant]
     Route: 065

REACTIONS (8)
  - Nervous system disorder [Not Recovered/Not Resolved]
  - Disorientation [Recovered/Resolved]
  - Infusion related reaction [Recovered/Resolved]
  - Infusion site bruising [Not Recovered/Not Resolved]
  - Fluid retention [Not Recovered/Not Resolved]
  - Adverse event [Unknown]
  - Nausea [Recovered/Resolved]
  - Pain in extremity [Not Recovered/Not Resolved]
